FAERS Safety Report 8341750-4 (Version None)
Quarter: 2012Q2

REPORT INFORMATION
  Report Type: 
  Country: None (occurrence: None)
  Receive Date: 20120507
  Receipt Date: 20120425
  Transmission Date: 20120825
  Serious: Yes (Hospitalization)
  Sender: FDA-Public Use
  Company Number: DE-BRISTOL-MYERS SQUIBB COMPANY-16546939

PATIENT
  Age: 42 Year
  Sex: Female

DRUGS (3)
  1. ORENCIA [Suspect]
     Indication: POLYARTHRITIS
     Dosage: RECEIVED FOR 7 TO 8 MONTHS
  2. ORENCIA [Suspect]
     Indication: RHEUMATOID ARTHRITIS
     Dosage: RECEIVED FOR 7 TO 8 MONTHS
  3. METHOTREXATE [Suspect]
     Indication: RHEUMATOID ARTHRITIS
     Dates: start: 20100101

REACTIONS (4)
  - VENOUS THROMBOSIS [None]
  - PULMONARY EMBOLISM [None]
  - GASTRIC NEOPLASM [None]
  - HAEMORRHOIDS [None]
